FAERS Safety Report 19088175 (Version 2)
Quarter: 2021Q2

REPORT INFORMATION
  Report Type: Report from Study
  Country: CN (occurrence: CN)
  Receive Date: 20210402
  Receipt Date: 20210407
  Transmission Date: 20210717
  Serious: Yes (Hospitalization)
  Sender: FDA-Public Use
  Company Number: CN-KARYOPHARM-2021KPT000193

PATIENT
  Age: 52 Year
  Sex: Female

DRUGS (7)
  1. SELINEXOR [Suspect]
     Active Substance: SELINEXOR
     Indication: ANGIOCENTRIC LYMPHOMA
     Dosage: 60 MG, 2X/CYCLE
     Route: 048
     Dates: start: 20201229
  2. GEMCITABINE. [Suspect]
     Active Substance: GEMCITABINE
     Indication: ANGIOCENTRIC LYMPHOMA
     Dosage: 1.55 G, 2XCYCLE
     Route: 042
     Dates: start: 20201228
  3. SELINEXOR [Suspect]
     Active Substance: SELINEXOR
     Dosage: 40 MG, 2X/CYCLE
     Route: 048
     Dates: start: 20210120
  4. ENTECAVIR. [Concomitant]
     Active Substance: ENTECAVIR
     Indication: HEPATITIS B
     Dosage: 0.5 MG, QD
     Route: 048
     Dates: start: 20201227
  5. OXALIPLATIN. [Suspect]
     Active Substance: OXALIPLATIN
     Indication: ANGIOCENTRIC LYMPHOMA
     Dosage: 201.5 MG, C1D1
     Route: 042
     Dates: start: 20201228, end: 20201228
  6. OXALIPLATIN. [Suspect]
     Active Substance: OXALIPLATIN
     Dosage: 149 MG, C1D1
     Route: 042
     Dates: start: 20210120
  7. GEMCITABINE. [Suspect]
     Active Substance: GEMCITABINE
     Dosage: 1.12 G, 2X/CYCLE
     Route: 042
     Dates: start: 20210120

REACTIONS (1)
  - Platelet count decreased [Recovered/Resolved]

NARRATIVE: CASE EVENT DATE: 20210204
